FAERS Safety Report 5370677-5 (Version None)
Quarter: 2007Q2

REPORT INFORMATION
  Report Type: 
  Country: None (occurrence: None)
  Receive Date: 20070618
  Receipt Date: 20060821
  Transmission Date: 20071010
  Serious: Yes (Hospitalization)
  Sender: FDA-Public Use
  Company Number: PHEH2006US10370

PATIENT
  Age: 86 Year
  Sex: Female

DRUGS (6)
  1. GLEEVEC [Suspect]
     Indication: CHRONIC MYELOID LEUKAEMIA
     Dosage: 400 MG, QD, ORAL; 200 MG, QD, ORAL
     Route: 048
     Dates: start: 20051202, end: 20060717
  2. ALLOPURINOL [Concomitant]
  3. LASIX [Concomitant]
  4. FOLIC ACID [Concomitant]
  5. CLONIDINE [Concomitant]
  6. DIGOXIN [Concomitant]

REACTIONS (4)
  - ABDOMINAL PAIN [None]
  - COLITIS [None]
  - DIARRHOEA [None]
  - OEDEMA [None]
